FAERS Safety Report 8487471-9 (Version None)
Quarter: 2012Q2

REPORT INFORMATION
  Report Type: 
  Country: None (occurrence: None)
  Receive Date: 20120614
  Receipt Date: 20120605
  Transmission Date: 20120825
  Serious: Yes (Hospitalization)
  Sender: FDA-Public Use
  Company Number: QR62569-01

PATIENT
  Sex: Female

DRUGS (1)
  1. GAMMAPLEX [Suspect]
     Indication: PRIMARY IMMUNODEFICIENCY SYNDROME

REACTIONS (6)
  - WHEEZING [None]
  - CHEST PAIN [None]
  - PRODUCT SUBSTITUTION ISSUE [None]
  - VIITH NERVE PARALYSIS [None]
  - DYSPNOEA [None]
  - MIGRAINE [None]
